FAERS Safety Report 7586209-7 (Version None)
Quarter: 2011Q2

REPORT INFORMATION
  Report Type: 
  Country: None (occurrence: None)
  Receive Date: 20110603
  Receipt Date: 20110425
  Transmission Date: 20111010
  Serious: No
  Sender: FDA-Public Use
  Company Number: 2011SP018888

PATIENT
  Age: 60 Year
  Sex: Female

DRUGS (5)
  1. SAPHRIS [Suspect]
     Indication: BIPOLAR DISORDER
     Dosage: 20 MG;HS;SL
     Route: 060
     Dates: start: 20110301
  2. PARNATE [Concomitant]
  3. SEROQUEL [Concomitant]
  4. BENAZEPRIL HYDROCHLORIDE [Concomitant]
  5. LEVOTHYROXINE SODIUM [Concomitant]

REACTIONS (6)
  - HYPOAESTHESIA [None]
  - CHEST PAIN [None]
  - THERAPEUTIC RESPONSE UNEXPECTED [None]
  - INAPPROPRIATE SCHEDULE OF DRUG ADMINISTRATION [None]
  - PARAESTHESIA [None]
  - PRODUCT TASTE ABNORMAL [None]
